FAERS Safety Report 6816222-6 (Version None)
Quarter: 2010Q3

REPORT INFORMATION
  Report Type: 
  Country: None (occurrence: None)
  Receive Date: 20100701
  Receipt Date: 20100701
  Transmission Date: 20110219
  Serious: Yes (Other)
  Sender: FDA-Public Use
  Company Number: None

PATIENT
  Sex: Female
  Weight: 30.6178 kg

DRUGS (3)
  1. RISPERIDONE [Suspect]
     Indication: AUTISM SPECTRUM DISORDER
     Dosage: 0.125 MG QAM PO
     Route: 048
     Dates: start: 20100520, end: 20100623
  2. RISPERIDONE [Suspect]
     Dosage: 0.625 MG QHS PO
     Route: 048
  3. ADDERAL XR [Concomitant]

REACTIONS (7)
  - ABDOMINAL PAIN UPPER [None]
  - AKATHISIA [None]
  - DYSKINESIA [None]
  - ENURESIS [None]
  - HEADACHE [None]
  - PAIN [None]
  - PRODUCT SUBSTITUTION ISSUE [None]
